FAERS Safety Report 7457949-5 (Version None)
Quarter: 2011Q2

REPORT INFORMATION
  Report Type: 
  Country: None (occurrence: None)
  Receive Date: 20110504
  Receipt Date: 20110427
  Transmission Date: 20111010
  Serious: Yes (Death)
  Sender: FDA-Public Use
  Company Number: US-SHIRE-SPV1-2011-00642

PATIENT
  Sex: Female

DRUGS (1)
  1. VELAGLUCERASE ALFA [Suspect]
     Indication: GAUCHER'S DISEASE
     Dosage: 60 UNITS/KG WEEKLY
     Route: 041

REACTIONS (2)
  - OFF LABEL USE [None]
  - CARDIAC FAILURE [None]
